FAERS Safety Report 25461523 (Version 6)
Quarter: 2025Q4

REPORT INFORMATION
  Report Type: Report from Study
  Country: US (occurrence: US)
  Receive Date: 20250620
  Receipt Date: 20251009
  Transmission Date: 20260117
  Serious: Yes (Other)
  Sender: AGIOS PHARMACEUTICALS
  Company Number: US-AGIOS-2506US04305

PATIENT
  Sex: Female

DRUGS (1)
  1. MITAPIVAT [Suspect]
     Active Substance: MITAPIVAT
     Indication: Pyruvate kinase deficiency anaemia
     Dosage: 5 MILLIGRAM, BID
     Route: 048
     Dates: start: 20250519

REACTIONS (14)
  - Small intestinal haemorrhage [Unknown]
  - Post procedural haemorrhage [Unknown]
  - Arthralgia [Unknown]
  - Headache [Unknown]
  - Contusion [Unknown]
  - Product dose omission issue [Unknown]
  - Malaise [Unknown]
  - Serum ferritin increased [Unknown]
  - Neuroendocrine tumour [Unknown]
  - Haemoglobin decreased [Unknown]
  - Adverse drug reaction [Unknown]
  - Dry mouth [Unknown]
  - Fall [Unknown]
  - Head injury [Unknown]
